FAERS Safety Report 12558459 (Version 14)
Quarter: 2018Q1

REPORT INFORMATION
  Report Type: Report from Study
  Country: CA (occurrence: CA)
  Receive Date: 20160714
  Receipt Date: 20180214
  Transmission Date: 20180508
  Serious: Yes (Hospitalization)
  Sender: FDA-Public Use
  Company Number: CA-TAKEDA-2016TUS010296

PATIENT
  Age: 68 Year
  Sex: Female

DRUGS (10)
  1. PANTOLOC [Suspect]
     Active Substance: PANTOPRAZOLE SODIUM
     Indication: PRODUCT USED FOR UNKNOWN INDICATION
     Dosage: 40 MG, QD
     Route: 048
     Dates: start: 20141114
  2. PLAVIX [Concomitant]
     Active Substance: CLOPIDOGREL BISULFATE
     Dosage: 75 MG, QD
     Dates: start: 2008
  3. PREDNISONE. [Suspect]
     Active Substance: PREDNISONE
     Indication: PRODUCT USED FOR UNKNOWN INDICATION
     Dosage: UNK
     Route: 065
  4. SYNTHROID [Concomitant]
     Active Substance: LEVOTHYROXINE SODIUM
     Dosage: 0.088 MG, QD
  5. EZETROL [Concomitant]
     Active Substance: EZETIMIBE
     Indication: BLOOD CHOLESTEROL INCREASED
     Dosage: 10 MG, QD
  6. SALOFALK                           /00000301/ [Suspect]
     Active Substance: MESALAMINE
     Indication: COLITIS
     Dosage: UNK
     Route: 065
     Dates: start: 201709
  7. VEDOLIZUMAB [Suspect]
     Active Substance: VEDOLIZUMAB
     Indication: COLITIS ULCERATIVE
     Dosage: 300 MG, UNK
     Route: 042
     Dates: start: 20160531
  8. CALCIUM WITH VITAMIN D [Concomitant]
     Active Substance: CALCIUM\VITAMIN D
     Dosage: 500 MG/400 IU
  9. BISOPROLOL [Concomitant]
     Active Substance: BISOPROLOL
     Dosage: 2.5 MG, QD
  10. CORTENEMA [Concomitant]
     Active Substance: HYDROCORTISONE
     Dosage: UNK UNK, QD

REACTIONS (13)
  - Alopecia [Unknown]
  - Abnormal faeces [Not Recovered/Not Resolved]
  - Colitis ulcerative [Unknown]
  - Diarrhoea [Recovered/Resolved]
  - Chest pain [Not Recovered/Not Resolved]
  - Faecal calprotectin increased [Unknown]
  - Constipation [Unknown]
  - Frequent bowel movements [Not Recovered/Not Resolved]
  - Flatulence [Unknown]
  - Epistaxis [Recovered/Resolved]
  - Haematochezia [Not Recovered/Not Resolved]
  - Abdominal distension [Unknown]
  - Skin fragility [Unknown]

NARRATIVE: CASE EVENT DATE: 201606
